FAERS Safety Report 23301005 (Version 1)
Quarter: 2023Q4

REPORT INFORMATION
  Report Type: Spontaneous
  Country: US (occurrence: None)
  Receive Date: 20231214
  Receipt Date: 20231214
  Transmission Date: 20240109
  Serious: No
  Sender: FDA-Public Use
  Company Number: None

PATIENT
  Sex: Female

DRUGS (2)
  1. ENBREL [Suspect]
     Active Substance: ETANERCEPT
     Indication: Psoriasis
     Dosage: 50 MG EVERY 7 DAYS SUBCUTANEOUS
     Route: 058
     Dates: start: 202309
  2. IMURAN [Suspect]
     Active Substance: AZATHIOPRINE

REACTIONS (5)
  - Rash [None]
  - Drug ineffective [None]
  - Insurance issue [None]
  - White blood cell count decreased [None]
  - Mucosal inflammation [None]
